FAERS Safety Report 6626248-3 (Version None)
Quarter: 2010Q1

REPORT INFORMATION
  Report Type: 
  Country: None (occurrence: None)
  Receive Date: 20100310
  Receipt Date: 20100303
  Transmission Date: 20100710
  Serious: Yes (Other)
  Sender: FDA-Public Use
  Company Number: US-BAXTER-2010BH004923

PATIENT
  Sex: Female

DRUGS (4)
  1. HEPARIN SODIUM INJECTION [Suspect]
     Indication: DRUG USE FOR UNKNOWN INDICATION
     Route: 065
     Dates: start: 20060501
  2. HEPARIN SODIUM INJECTION [Suspect]
     Route: 065
     Dates: start: 20060501
  3. LOVENOX [Suspect]
     Indication: DRUG USE FOR UNKNOWN INDICATION
     Route: 065
     Dates: start: 20060501
  4. LOVENOX [Suspect]
     Route: 065
     Dates: start: 20060501

REACTIONS (4)
  - ABDOMINAL PAIN [None]
  - HAEMORRHAGE [None]
  - OEDEMA PERIPHERAL [None]
  - PAIN IN EXTREMITY [None]
